FAERS Safety Report 14077886 (Version 1)
Quarter: 2017Q4

REPORT INFORMATION
  Report Type: Spontaneous
  Country: US (occurrence: None)
  Receive Date: 20171011
  Receipt Date: 20171011
  Transmission Date: 20180321
  Serious: No
  Sender: FDA-Public Use
  Company Number: None

PATIENT
  Age: 68 Year
  Sex: Female

DRUGS (1)
  1. CYCLOSPORINE CAP MOD 100MG [Suspect]
     Active Substance: CYCLOSPORINE

REACTIONS (6)
  - Nausea [None]
  - Headache [None]
  - Diarrhoea [None]
  - Product odour abnormal [None]
  - Vomiting [None]
  - Product quality issue [None]

NARRATIVE: CASE EVENT DATE: 20171010
